FAERS Safety Report 14267935 (Version 1)
Quarter: 2017Q4

REPORT INFORMATION
  Report Type: Spontaneous
  Country: US (occurrence: US)
  Receive Date: 20171211
  Receipt Date: 20171211
  Transmission Date: 20180321
  Serious: No
  Sender: FDA-Public Use
  Company Number: US-ROCHE-1871580

PATIENT
  Sex: Female
  Weight: 60.06 kg

DRUGS (9)
  1. PLAQUENIL [Concomitant]
     Active Substance: HYDROXYCHLOROQUINE SULFATE
  2. XELJANZ [Concomitant]
     Active Substance: TOFACITINIB CITRATE
     Route: 048
     Dates: end: 20160127
  3. VALIUM [Suspect]
     Active Substance: DIAZEPAM
     Indication: PRODUCT USED FOR UNKNOWN INDICATION
     Route: 065
  4. OMNIPAQUE [Concomitant]
     Active Substance: IOHEXOL
  5. AMINOBENZOIC ACID [Concomitant]
     Active Substance: AMINOBENZOIC ACID
  6. CLINDAMYCIN. [Concomitant]
     Active Substance: CLINDAMYCIN
     Route: 048
  7. IODINE. [Concomitant]
     Active Substance: IODINE
  8. LANOLIN. [Concomitant]
     Active Substance: LANOLIN
     Route: 065
  9. PREDNISONE. [Concomitant]
     Active Substance: PREDNISONE

REACTIONS (1)
  - Drug hypersensitivity [Unknown]
